FAERS Safety Report 17200862 (Version 2)
Quarter: 2020Q1

REPORT INFORMATION
  Report Type: Report from Study
  Country: CA (occurrence: CA)
  Receive Date: 20191226
  Receipt Date: 20200218
  Transmission Date: 20200409
  Serious: Yes (Death, Hospitalization)
  Sender: FDA-Public Use
  Company Number: CA-EMD SERONO-9136498

PATIENT
  Age: 57 Year
  Sex: Female

DRUGS (1)
  1. REBIF [Suspect]
     Active Substance: INTERFERON BETA-1A
     Indication: MULTIPLE SCLEROSIS
     Route: 058
     Dates: start: 20000101, end: 20170727

REACTIONS (3)
  - Death [Fatal]
  - Jaundice [Unknown]
  - Cholelithiasis [Unknown]

NARRATIVE: CASE EVENT DATE: 201707
